FAERS Safety Report 8679992 (Version 4)
Quarter: 2013Q3

REPORT INFORMATION
  Report Type: Spontaneous
  Country: US (occurrence: US)
  Receive Date: 20120724
  Receipt Date: 20130909
  Transmission Date: 20140515
  Serious: Yes (Hospitalization, Disabling, Other)
  Sender: FDA-Public Use
  Company Number: US-009507513-1207USA004253

PATIENT
  Sex: Female
  Weight: 58.5 kg

DRUGS (18)
  1. FOSAMAX [Suspect]
     Indication: OSTEOPOROSIS
     Dosage: 10 MG, UNK
     Route: 048
     Dates: start: 199706, end: 200012
  2. FOSAMAX [Suspect]
     Dosage: 70 MG, WEEKLY
     Route: 048
     Dates: start: 200101, end: 200802
  3. FOSAMAX [Suspect]
     Route: 048
  4. ALENDRONATE SODIUM [Suspect]
     Indication: OSTEOPOROSIS
     Dosage: 70 MG, UNK
     Dates: start: 200803, end: 201008
  5. CALCIUM (UNSPECIFIED) [Concomitant]
     Indication: OSTEOPOROSIS
     Dosage: 0.5 MG, DAILY
     Dates: start: 1996
  6. ASCORBIC ACID [Concomitant]
     Dosage: 200-500MG, DAILY
     Route: 048
     Dates: start: 1996
  7. VITAMIN D (UNSPECIFIED) [Concomitant]
     Indication: OSTEOPOROSIS
     Dosage: 800-5000 IU DAILY
     Dates: start: 1996
  8. VITAMIN E [Concomitant]
     Dosage: 200 IU, QAM
     Dates: start: 1996
  9. CYANOCOBALAMIN [Concomitant]
     Dosage: 1000 MCG QAM
     Route: 048
     Dates: start: 1996
  10. OMEGA-3 MARINE TRIGLYCERIDES [Concomitant]
     Dosage: 1200 MG, DAILY
     Dates: start: 1996
  11. VITAMINS (UNSPECIFIED) [Concomitant]
     Dosage: DAILY
     Dates: start: 1996
  12. ZINC (UNSPECIFIED) [Concomitant]
     Dosage: 50 MG, DAILY
     Dates: start: 1996
  13. PAXIL [Concomitant]
     Indication: DEPRESSION
     Dosage: 20 MG, UNK
     Dates: start: 2001, end: 2008
  14. TRAZODONE HYDROCHLORIDE [Concomitant]
     Indication: DEPRESSION
     Dosage: 25-50MG QHS, PRN
     Dates: start: 1994, end: 2003
  15. SEROQUEL XR [Concomitant]
     Indication: DEPRESSION
     Dosage: 100-200 MG, Q HS
     Dates: start: 2005, end: 20100825
  16. BUPROPION HYDROCHLORIDE [Concomitant]
     Indication: DEPRESSION
     Dosage: UNK
     Dates: start: 2008, end: 2009
  17. KLONOPIN [Concomitant]
     Indication: PANIC ATTACK
     Dosage: 1 MG, PRN
     Dates: start: 1994
  18. FORTICAL (CALCIUM CARBONATE) [Concomitant]
     Indication: OSTEOPOROSIS

REACTIONS (85)
  - Intramedullary rod insertion [Unknown]
  - Open reduction of fracture [Unknown]
  - Hip fracture [Unknown]
  - Depression [Not Recovered/Not Resolved]
  - Breast cancer [Unknown]
  - Mastectomy [Unknown]
  - Recurrent cancer [Unknown]
  - Lumbar vertebral fracture [Unknown]
  - Thyroidectomy [Unknown]
  - Explorative laparotomy [Unknown]
  - Urinary tract infection [Unknown]
  - Chest wall operation [Unknown]
  - Squamous cell carcinoma of skin [Unknown]
  - Chest wall operation [Unknown]
  - Clostridium difficile infection [Unknown]
  - Urinary tract infection [Unknown]
  - Clostridium difficile infection [Unknown]
  - Femur fracture [Unknown]
  - Femur fracture [Unknown]
  - Low turnover osteopathy [Unknown]
  - Fall [Unknown]
  - Pelvic fracture [Unknown]
  - Anxiety [Unknown]
  - Tremor [Unknown]
  - Rib fracture [Unknown]
  - Parkinson^s disease [Unknown]
  - Road traffic accident [Unknown]
  - Mental status changes [Unknown]
  - Bipolar I disorder [Unknown]
  - Fall [Unknown]
  - Spinal compression fracture [Unknown]
  - Clavicle fracture [Unknown]
  - Musculoskeletal disorder [Unknown]
  - Impaired healing [Recovering/Resolving]
  - Tendonitis [Unknown]
  - Lymphoedema [Recovering/Resolving]
  - Fall [Unknown]
  - Pelvic fracture [Recovering/Resolving]
  - Seborrhoeic keratosis [Unknown]
  - Osteopenia [Unknown]
  - Anaemia postoperative [Unknown]
  - Irritable bowel syndrome [Unknown]
  - Pollakiuria [Unknown]
  - Vertebroplasty [Unknown]
  - Confusional state [Unknown]
  - Fall [Unknown]
  - Oophorectomy [Unknown]
  - Auricular perichondritis [Unknown]
  - Cancer surgery [Unknown]
  - Tendonitis [Unknown]
  - Muscle strain [Unknown]
  - Sternal fracture [Not Recovered/Not Resolved]
  - Cough [Unknown]
  - Fracture nonunion [Unknown]
  - Breast lump removal [Unknown]
  - Rib fracture [Unknown]
  - Vitamin D increased [Unknown]
  - Scoliosis [Unknown]
  - Foot operation [Unknown]
  - Fall [Unknown]
  - Rib fracture [Unknown]
  - Weight increased [Unknown]
  - Tonsillectomy [Unknown]
  - Rash [Unknown]
  - Fall [Unknown]
  - Clavicle fracture [Unknown]
  - Premature menopause [Unknown]
  - Bone disorder [Unknown]
  - Lumbar vertebral fracture [Unknown]
  - Chondropathy [Unknown]
  - Clostridium difficile infection [Unknown]
  - Tremor [Unknown]
  - Micturition urgency [Unknown]
  - Atrophic vulvovaginitis [Unknown]
  - Venous insufficiency [Unknown]
  - Arthropathy [Unknown]
  - Lacrimal duct procedure [Unknown]
  - Vitamin D decreased [Unknown]
  - Radiotherapy to breast [Unknown]
  - Uterine dilation and curettage [Unknown]
  - Red blood cells urine [Unknown]
  - Rib fracture [Unknown]
  - Anaemia [Recovered/Resolved]
  - Asthenia [Unknown]
  - Local swelling [Unknown]
